FAERS Safety Report 23268442 (Version 1)
Quarter: 2023Q4

REPORT INFORMATION
  Report Type: Spontaneous
  Country: US (occurrence: None)
  Receive Date: 20231206
  Receipt Date: 20231206
  Transmission Date: 20240110
  Serious: Yes (Hospitalization)
  Sender: FDA-Public Use
  Company Number: None

PATIENT
  Age: 63 Year
  Sex: Male

DRUGS (2)
  1. LENALIDOMIDE [Suspect]
     Active Substance: LENALIDOMIDE
     Indication: Plasma cell myeloma
     Route: 048
     Dates: start: 202309
  2. REVLIMID [Concomitant]
     Active Substance: LENALIDOMIDE

REACTIONS (3)
  - Pulmonary embolism [None]
  - Swelling face [None]
  - Therapy change [None]

NARRATIVE: CASE EVENT DATE: 20231205
